FAERS Safety Report 5914995-8 (Version None)
Quarter: 2008Q4

REPORT INFORMATION
  Report Type: 
  Country: None (occurrence: None)
  Receive Date: 20081008
  Receipt Date: 20080924
  Transmission Date: 20090506
  Serious: Yes (Life-Threatening, Hospitalization, Disabling)
  Sender: FDA-Public Use
  Company Number: US024266

PATIENT
  Sex: Male
  Weight: 85.7298 kg

DRUGS (19)
  1. ACTIQ [Suspect]
     Indication: NECK PAIN
     Dosage: 800 UG QD BUCCAL
     Route: 002
     Dates: start: 20050701, end: 20060101
  2. ACTIQ [Suspect]
     Indication: NECK PAIN
     Dosage: 800 UG BID BUCCAL
     Route: 002
     Dates: start: 20060201, end: 20060301
  3. ACTIQ [Suspect]
     Indication: NECK PAIN
     Dosage: 800 UG TID BUCCAL
     Route: 002
     Dates: start: 20061002, end: 20070201
  4. OXYCONTIN [Suspect]
     Dosage: 40 MG TID ORAL
     Route: 048
     Dates: start: 20050101
  5. OXYCONTIN [Suspect]
     Dosage: 120 MG TID ORAL
     Route: 048
  6. OXYCONTIN [Suspect]
     Dosage: 160 MG TID ORAL
     Route: 048
  7. DILAUDID [Suspect]
     Dosage: ORAL
     Route: 048
  8. DILAUDID [Suspect]
     Dosage: 20 MG DAILY ORAL
     Route: 048
     Dates: end: 20060101
  9. DILAUDID [Suspect]
     Dosage: PRN ORAL
     Route: 048
     Dates: start: 20060101
  10. KLONOPIN [Suspect]
     Dosage: 2 MG TID ORAL
     Route: 048
     Dates: start: 20050101, end: 20050601
  11. KLONOPIN [Suspect]
     Dosage: 0.5 MG BID ORAL
     Route: 048
     Dates: start: 20050601, end: 20060101
  12. KLONOPIN [Suspect]
     Dosage: 1 MG BID ORAL
     Route: 048
     Dates: start: 20060101, end: 20070101
  13. KLONOPIN [Suspect]
     Dosage: 1 MG QID ORAL
     Route: 048
     Dates: start: 20070101
  14. SOMA [Suspect]
     Indication: MUSCLE SPASMS
     Dosage: ORAL
     Route: 048
     Dates: start: 20040101, end: 20050101
  15. SOMA [Suspect]
     Indication: MUSCLE SPASMS
     Dosage: 700 MG QHS ORAL
     Route: 048
     Dates: start: 20050101, end: 20060101
  16. SOMA [Suspect]
     Indication: MUSCLE SPASMS
     Dosage: 1050 MG DAILY ORAL
     Route: 048
     Dates: start: 20060101, end: 20070101
  17. SOMA [Suspect]
     Indication: MUSCLE SPASMS
     Dosage: 1750 MG DAILY ORAL
     Route: 048
     Dates: start: 20070101
  18. SUBUTEX [Concomitant]
  19. AMBIEN [Concomitant]

REACTIONS (11)
  - BRUXISM [None]
  - DENTAL CARIES [None]
  - DRUG DEPENDENCE [None]
  - DRY MOUTH [None]
  - GINGIVITIS [None]
  - IMPRISONMENT [None]
  - INCORRECT ROUTE OF DRUG ADMINISTRATION [None]
  - MENTAL DISORDER DUE TO A GENERAL MEDICAL CONDITION [None]
  - POOR PERSONAL HYGIENE [None]
  - TOOTH INFECTION [None]
  - TREATMENT NONCOMPLIANCE [None]
